FAERS Safety Report 6861936-5 (Version None)
Quarter: 2010Q3

REPORT INFORMATION
  Report Type: 
  Country: None (occurrence: None)
  Receive Date: 20100720
  Receipt Date: 20100720
  Transmission Date: 20110219
  Serious: Yes (Other)
  Sender: FDA-Public Use
  Company Number: None

PATIENT
  Age: 60 Year
  Sex: Female
  Weight: 74.3899 kg

DRUGS (2)
  1. PRILOSEC [Suspect]
     Indication: GASTROOESOPHAGEAL REFLUX DISEASE
     Dosage: 1 PILL 2/DAY PO (2-3 MONTHS--GUESS)
     Route: 048
  2. DEXILANT [Suspect]
     Indication: GASTROOESOPHAGEAL REFLUX DISEASE
     Dosage: 1 PILL 1/DAY PO (12-15 WEEKS--ESTIMATE)
     Route: 048

REACTIONS (4)
  - CHEST DISCOMFORT [None]
  - FOOD ALLERGY [None]
  - MOVEMENT DISORDER [None]
  - PAIN [None]
